FAERS Safety Report 8834772 (Version 1)
Quarter: 2012Q4

REPORT INFORMATION
  Report Type: Report from Study
  Country: RU (occurrence: RU)
  Receive Date: 20121010
  Receipt Date: 20121010
  Transmission Date: 20130627
  Serious: Yes (Other)
  Sender: FDA-Public Use
  Company Number: RU-ROCHE-1143860

PATIENT
  Age: 60 Year
  Sex: Female
  Weight: 83 kg

DRUGS (8)
  1. AVASTIN [Suspect]
     Indication: COLON CANCER METASTATIC
     Route: 042
     Dates: start: 20120203
  2. XELODA [Suspect]
     Indication: COLON CANCER METASTATIC
     Route: 048
     Dates: start: 20120203, end: 20120217
  3. IRINOTECAN [Suspect]
     Indication: COLON CANCER METASTATIC
     Route: 065
     Dates: start: 20120608
  4. IRINOTECAN [Suspect]
     Route: 065
  5. 5-FLUOROURACIL [Concomitant]
     Indication: COLON CANCER METASTATIC
     Route: 065
     Dates: start: 20120302, end: 20120608
  6. OXALIPLATIN [Concomitant]
     Indication: COLON CANCER METASTATIC
     Route: 065
     Dates: start: 20120203
  7. OXALIPLATIN [Concomitant]
     Route: 065
  8. LEUCOVORIN [Concomitant]
     Indication: COLON CANCER METASTATIC
     Route: 065
     Dates: start: 20120302, end: 20120705

REACTIONS (2)
  - Disease progression [Not Recovered/Not Resolved]
  - Diarrhoea [Recovered/Resolved]
